FAERS Safety Report 5308501-9 (Version None)
Quarter: 2007Q2

REPORT INFORMATION
  Report Type: 
  Country: None (occurrence: None)
  Receive Date: 20070424
  Receipt Date: 20070424
  Transmission Date: 20071010
  Serious: No
  Sender: FDA-Public Use
  Company Number: None

PATIENT
  Sex: Female
  Weight: 53.6 kg

DRUGS (9)
  1. TEMOZOLOMIDE [Suspect]
     Dosage: 3150 MG
  2. TEMOZOLOMIDE [Suspect]
  3. TEMOZOLOMIDE [Suspect]
  4. DECADRON [Concomitant]
  5. KEPPRA [Concomitant]
  6. OXYCONTIN [Concomitant]
  7. PROVIGIL [Concomitant]
  8. SINEMET [Concomitant]
  9. ZOFRAN [Concomitant]

REACTIONS (1)
  - DEATH [None]
